FAERS Safety Report 6645195-4 (Version None)
Quarter: 2010Q1

REPORT INFORMATION
  Report Type: 
  Country: None (occurrence: None)
  Receive Date: 20100308
  Receipt Date: 20100301
  Transmission Date: 20100710
  Serious: No
  Sender: FDA-Public Use
  Company Number: 2010-00286

PATIENT
  Age: 67 Year
  Sex: Male
  Weight: 84.369 kg

DRUGS (3)
  1. ZICAM COLD REMEDY ORAL MIST [Suspect]
     Dosage: QD - ONE DOSE
     Dates: start: 20100225, end: 20100225
  2. SIMVASTATIN [Concomitant]
  3. AMLODIPINE BESYLATE [Concomitant]

REACTIONS (1)
  - AGEUSIA [None]
